FAERS Safety Report 8519348-4 (Version None)
Quarter: 2012Q3

REPORT INFORMATION
  Report Type: 
  Country: None (occurrence: None)
  Receive Date: 20120718
  Receipt Date: 20120712
  Transmission Date: 20120928
  Serious: Yes (Other)
  Sender: FDA-Public Use
  Company Number: CN-BAYER-2012-069975

PATIENT
  Age: 51 Year
  Sex: Male

DRUGS (6)
  1. LIPITOR [Suspect]
  2. ASPIRIN [Suspect]
  3. TONGXINLUO [Suspect]
  4. DIGOXIN [Suspect]
  5. YIMUDUO [Suspect]
  6. YASHIDA [Suspect]

REACTIONS (5)
  - EAR INFECTION [None]
  - SUBCUTANEOUS ABSCESS [None]
  - ERYTHEMA OF EYELID [None]
  - EYELID OEDEMA [None]
  - RASH ERYTHEMATOUS [None]
